FAERS Safety Report 9344043 (Version 3)
Quarter: 2013Q3

REPORT INFORMATION
  Report Type: Spontaneous
  Country: JP (occurrence: JP)
  Receive Date: 20130612
  Receipt Date: 20130819
  Transmission Date: 20140515
  Serious: Yes (Other)
  Sender: FDA-Public Use
  Company Number: JP-PFIZER INC-2013177051

PATIENT
  Age: 70 Year
  Sex: Male

DRUGS (3)
  1. LYRICA [Suspect]
     Dosage: 25 MG, 3X/DAY
     Route: 048
  2. MAINTATE [Concomitant]
     Dosage: UNK
     Route: 048
  3. WARFARIN [Concomitant]

REACTIONS (1)
  - Bradycardia [Recovered/Resolved]
